FAERS Safety Report 18843935 (Version 1)
Quarter: 2021Q1

REPORT INFORMATION
  Report Type: Report from Study
  Country: US (occurrence: US)
  Receive Date: 20210203
  Receipt Date: 20210203
  Transmission Date: 20210419
  Serious: No
  Sender: FDA-Public Use
  Company Number: US-EXELIXIS-CABO-20031062

PATIENT
  Age: 62 Year
  Sex: Male

DRUGS (2)
  1. CABOMETYX [Suspect]
     Active Substance: CABOZANTINIB S-MALATE
     Indication: METASTASES TO LUNG
     Dosage: 40 MG, QD
     Dates: start: 20200608
  2. CABOMETYX [Suspect]
     Active Substance: CABOZANTINIB S-MALATE
     Dosage: 40 MG (6DAY/WEEK)
     Dates: start: 20200622

REACTIONS (14)
  - Blood pressure diastolic increased [Recovering/Resolving]
  - Dry mouth [Unknown]
  - Hepatic enzyme increased [Unknown]
  - Muscle spasms [Not Recovered/Not Resolved]
  - Fatigue [Recovering/Resolving]
  - Headache [Unknown]
  - Inappropriate schedule of product administration [Unknown]
  - Blood glucose decreased [Unknown]
  - Constipation [Recovered/Resolved]
  - Myalgia [Recovered/Resolved]
  - Dry skin [Recovered/Resolved]
  - Off label use [Unknown]
  - Decreased appetite [Unknown]
  - Weight decreased [Unknown]

NARRATIVE: CASE EVENT DATE: 20200622
